FAERS Safety Report 9403227 (Version 1)
Quarter: 2013Q3

REPORT INFORMATION
  Report Type: Report from Study
  Country: US (occurrence: US)
  Receive Date: 20130716
  Receipt Date: 20130716
  Transmission Date: 20140515
  Serious: Yes (Life-Threatening, Hospitalization, Other)
  Sender: FDA-Public Use
  Company Number: US-ACTELION-A-US2010-33805

PATIENT
  Age: 73 Year
  Sex: Male

DRUGS (6)
  1. TRACLEER [Suspect]
     Indication: PULMONARY ARTERIAL HYPERTENSION
     Dosage: UNK
     Route: 048
     Dates: start: 20080502
  2. REVATIO [Concomitant]
  3. LASIX [Concomitant]
  4. TYVASO [Concomitant]
  5. COUMADIN [Concomitant]
  6. PREDNISONE [Concomitant]
     Dosage: 10 MG, UNK

REACTIONS (10)
  - Atrial fibrillation [Unknown]
  - Atrial flutter [Unknown]
  - Renal failure acute [Recovering/Resolving]
  - Cardiac failure [Recovering/Resolving]
  - Fluid overload [Recovering/Resolving]
  - Dyspnoea [Recovering/Resolving]
  - Mobility decreased [Recovering/Resolving]
  - Oedema peripheral [Unknown]
  - Oedema [Recovering/Resolving]
  - Weight increased [Unknown]
